FAERS Safety Report 17629108 (Version 1)
Quarter: 2020Q2

REPORT INFORMATION
  Report Type: Spontaneous
  Country: US (occurrence: US)
  Receive Date: 20200406
  Receipt Date: 20200406
  Transmission Date: 20200713
  Serious: No
  Sender: FDA-Public Use
  Company Number: US-ALLERGAN-1951284US

PATIENT
  Sex: Female
  Weight: 68.04 kg

DRUGS (2)
  1. MESALAMINE. [Concomitant]
     Active Substance: MESALAMINE
     Indication: COLITIS ULCERATIVE
     Dosage: 4 TABLETS PER DAY
     Route: 048
  2. MESALAZINE 1 GM SUP [Suspect]
     Active Substance: MESALAMINE
     Indication: COLITIS ULCERATIVE
     Dosage: 1000 MG, QD

REACTIONS (3)
  - Pain [Unknown]
  - Incorrect dose administered [Unknown]
  - Product quality issue [Unknown]
